FAERS Safety Report 5031526-8 (Version None)
Quarter: 2006Q2

REPORT INFORMATION
  Report Type: 
  Country: None (occurrence: None)
  Receive Date: 20060616
  Receipt Date: 20060602
  Transmission Date: 20061013
  Serious: Yes (Hospitalization)
  Sender: FDA-Public Use
  Company Number: FABR-11019

PATIENT
  Age: 50 Year
  Sex: Male
  Weight: 98.8842 kg

DRUGS (4)
  1. FABRAZYME [Suspect]
     Indication: FABRY'S DISEASE
     Dosage: 105 MG Q2WKS IV
     Route: 042
     Dates: start: 20030827
  2. DIOVAN [Concomitant]
  3. BUMEX [Concomitant]
  4. COUMADIN [Concomitant]

REACTIONS (11)
  - ATRIAL FIBRILLATION [None]
  - BLOOD CREATININE INCREASED [None]
  - BUNDLE BRANCH BLOCK RIGHT [None]
  - CARDIAC FAILURE CONGESTIVE [None]
  - CREATININE RENAL CLEARANCE DECREASED [None]
  - DIALYSIS [None]
  - DISEASE RECURRENCE [None]
  - EJECTION FRACTION DECREASED [None]
  - MUSCLE TWITCHING [None]
  - RENAL FAILURE ACUTE [None]
  - RESTRICTIVE CARDIOMYOPATHY [None]
